FAERS Safety Report 22147929 (Version 1)
Quarter: 2023Q1

REPORT INFORMATION
  Report Type: Spontaneous
  Country: GB (occurrence: GB)
  Receive Date: 20230328
  Receipt Date: 20230328
  Transmission Date: 20230418
  Serious: Yes (Other)
  Sender: FDA-Public Use
  Company Number: None

PATIENT
  Age: 70 Year
  Sex: Female
  Weight: 52 kg

DRUGS (12)
  1. RISEDRONATE SODIUM [Suspect]
     Active Substance: RISEDRONATE SODIUM
     Indication: Prophylaxis
     Dosage: 35 MILLIGRAM, QW (TO PROTECT YOUR BONES)
     Route: 065
     Dates: start: 20221102
  2. ALENDRONIC ACID [Concomitant]
     Active Substance: ALENDRONIC ACID
     Dosage: 1 DOSAGE FORM, QD
     Route: 065
     Dates: start: 20230228
  3. AZARGA [Concomitant]
     Active Substance: BRINZOLAMIDE\TIMOLOL MALEATE
     Dosage: 1 DOSAGE FORM, TID (DROP, BOTH EYES)
     Route: 065
     Dates: start: 20211009
  4. CALCI D [Concomitant]
     Dosage: 1 DOSAGE FORM, QD
     Route: 065
     Dates: start: 20211105
  5. HYLO TEAR [Concomitant]
     Dosage: UNK (USE AS DIRECTED)
     Route: 065
     Dates: start: 20211009
  6. IBANDRONIC ACID [Concomitant]
     Active Substance: IBANDRONIC ACID
     Dosage: 1 DOSAGE FORM, MONTHLY (TAKE ONE ONCE A MONTH)
     Route: 065
     Dates: start: 20230316
  7. LETROZOLE [Concomitant]
     Active Substance: LETROZOLE
     Dosage: 1 DOSAGE FORM, QD
     Route: 065
     Dates: start: 20211105
  8. LOPERAMIDE [Concomitant]
     Active Substance: LOPERAMIDE
     Dosage: 1 DOSAGE FORM, QD (AT NIGHT WHEN REQUIRED)
     Route: 065
     Dates: start: 20211009
  9. LUMIGAN [Concomitant]
     Active Substance: BIMATOPROST
     Dosage: 1 DOSAGE FORM, QD (DROP, BOTH EYES)
     Route: 065
     Dates: start: 20211009
  10. MORPHINE SULFATE [Concomitant]
     Active Substance: MORPHINE SULFATE
     Dosage: 1 DOSAGE FORM, QD (EACH MORNING)
     Route: 065
     Dates: start: 20211009
  11. MORPHINE SULFATE [Concomitant]
     Active Substance: MORPHINE SULFATE
     Dosage: 5 MILLIGRAM, BID (AT 6PM AND AT NIGHT)
     Route: 065
     Dates: start: 20211009
  12. PREGABALIN [Concomitant]
     Active Substance: PREGABALIN
     Dosage: 1 DOSAGE FORM, BID (1 TO BE TAKEN TWICE DAILY)
     Route: 065
     Dates: start: 20211009

REACTIONS (1)
  - Flatulence [Recovering/Resolving]
